APPROVED DRUG PRODUCT: CETRORELIX ACETATE
Active Ingredient: CETRORELIX ACETATE
Strength: EQ 0.25MG BASE/VIAL
Dosage Form/Route: POWDER;SUBCUTANEOUS
Application: A218061 | Product #001 | TE Code: AP
Applicant: XIROMED PHARMA ESPANA SL
Approved: Jun 3, 2025 | RLD: No | RS: No | Type: RX